FAERS Safety Report 7138583-3 (Version None)
Quarter: 2010Q4

REPORT INFORMATION
  Report Type: 
  Country: None (occurrence: None)
  Receive Date: 20101118
  Receipt Date: 20101104
  Transmission Date: 20110411
  Serious: Yes (Other)
  Sender: FDA-Public Use
  Company Number: 7025790

PATIENT
  Age: 48 Year
  Sex: Male

DRUGS (3)
  1. LEVOTHYROX 200 (LEVOTHYROXINE SODIUM)(200 MICROGRAM, TABLET)(LEVOTHYRO [Suspect]
     Indication: PRODUCT USED FOR UNKNOWN INDICATION
     Dosage: 1 DF (1 DF, 1 IN 1 D) ORAL
     Route: 048
     Dates: start: 20091001
  2. KALETRA [Suspect]
     Indication: PRODUCT USED FOR UNKNOWN INDICATION
     Dosage: ORAL
     Route: 048
     Dates: start: 20070715, end: 20100825
  3. KIVEXA (ABACAVIR SULFATE W/LAMIVUDINE)(LAMIVUDINE, ABACAVIR) [Concomitant]

REACTIONS (2)
  - DRUG INTERACTION [None]
  - HYPOTHYROIDISM [None]
